FAERS Safety Report 6813584-0 (Version None)
Quarter: 2010Q3

REPORT INFORMATION
  Report Type: 
  Country: None (occurrence: None)
  Receive Date: 20100701
  Receipt Date: 20100520
  Transmission Date: 20110219
  Serious: Yes (Hospitalization, Other)
  Sender: FDA-Public Use
  Company Number: US-BAXTER-2010BH002717

PATIENT
  Age: 37 Year
  Sex: Female
  Weight: 108 kg

DRUGS (12)
  1. HEPARIN SODIUM [Suspect]
     Indication: THROMBOSIS PROPHYLAXIS
     Route: 058
     Dates: start: 20080209, end: 20080211
  2. HEPARIN SODIUM [Suspect]
     Indication: CATHETER PLACEMENT
     Route: 058
     Dates: start: 20080209, end: 20080211
  3. HEPARIN SODIUM [Suspect]
     Route: 042
     Dates: start: 20080213, end: 20080213
  4. HEPARIN SODIUM [Suspect]
     Route: 042
     Dates: start: 20080213, end: 20080213
  5. LOVENOX [Suspect]
     Indication: THROMBOSIS PROPHYLAXIS
     Route: 058
     Dates: start: 20080209, end: 20080209
  6. ALBUTEROL [Concomitant]
     Indication: ASTHMA
     Route: 055
  7. ADVAIR DISKUS 100/50 [Concomitant]
     Indication: ASTHMA
     Route: 055
  8. PREDNISONE TAB [Concomitant]
     Indication: PRODUCT USED FOR UNKNOWN INDICATION
     Route: 065
  9. PULMICORT [Concomitant]
     Indication: ASTHMA
     Route: 055
  10. ALBUTEROL SULFATE AND IPRATROPIUM BROMIDE [Concomitant]
     Indication: ASTHMA
     Route: 055
  11. FLONASE [Concomitant]
     Indication: PRODUCT USED FOR UNKNOWN INDICATION
     Route: 045
  12. ALBUTEROL [Concomitant]
     Route: 055

REACTIONS (9)
  - CONTUSION [None]
  - ESCHERICHIA URINARY TRACT INFECTION [None]
  - GASTROINTESTINAL HAEMORRHAGE [None]
  - HAEMATURIA [None]
  - HYPERSENSITIVITY [None]
  - NAUSEA [None]
  - PYREXIA [None]
  - THROMBOTIC THROMBOCYTOPENIC PURPURA [None]
  - VOMITING [None]
